FAERS Safety Report 6758702-8 (Version None)
Quarter: 2010Q2

REPORT INFORMATION
  Report Type: 
  Country: None (occurrence: None)
  Receive Date: 20100607
  Receipt Date: 20100528
  Transmission Date: 20101027
  Serious: Yes (Other)
  Sender: FDA-Public Use
  Company Number: CA-BAYER-200943873NA

PATIENT
  Age: 35 Year
  Sex: Female

DRUGS (2)
  1. YASMIN [Suspect]
     Indication: PREMENSTRUAL SYNDROME
     Dates: start: 20091224, end: 20091226
  2. ARTHRITIS MEDICATION NOS [Concomitant]
     Indication: ARTHRITIS
     Dates: start: 20091224

REACTIONS (6)
  - ABDOMINAL PAIN UPPER [None]
  - APHAGIA [None]
  - HEADACHE [None]
  - NAUSEA [None]
  - PAIN IN EXTREMITY [None]
  - VOMITING [None]
